FAERS Safety Report 9929954 (Version 1)
Quarter: 2014Q1

REPORT INFORMATION
  Report Type: Spontaneous
  Country: PL (occurrence: PL)
  Receive Date: 20140227
  Receipt Date: 20140227
  Transmission Date: 20141002
  Serious: Yes (Other)
  Sender: FDA-Public Use
  Company Number: PHHY2014PL019845

PATIENT
  Age: 74 Year
  Sex: Female
  Weight: 72 kg

DRUGS (3)
  1. BETO ZK [Suspect]
     Indication: HYPERTENSION
     Dosage: 0.5 DF, BID
     Route: 048
  2. AMPRIL HL [Suspect]
     Indication: HYPERTENSION
     Dosage: 0.5 DF, QD
  3. POLOCARD [Concomitant]
     Dosage: 75 MG, QD

REACTIONS (12)
  - Hyperkalaemia [Not Recovered/Not Resolved]
  - Skin exfoliation [Not Recovered/Not Resolved]
  - Nasal congestion [Not Recovered/Not Resolved]
  - Dysphonia [Not Recovered/Not Resolved]
  - Oropharyngeal pain [Not Recovered/Not Resolved]
  - Hearing impaired [Not Recovered/Not Resolved]
  - Pharyngitis [Not Recovered/Not Resolved]
  - Skin burning sensation [Not Recovered/Not Resolved]
  - Dry skin [Not Recovered/Not Resolved]
  - Skin wrinkling [Not Recovered/Not Resolved]
  - Tinnitus [Not Recovered/Not Resolved]
  - Rhinitis [Not Recovered/Not Resolved]
